FAERS Safety Report 10510718 (Version 1)
Quarter: 2014Q3

REPORT INFORMATION
  Report Type: Spontaneous
  Country: US (occurrence: None)
  Receive Date: 20140915
  Receipt Date: 20140915
  Transmission Date: 20150326
  Serious: Yes (Other)
  Sender: FDA-Public Use
  Company Number: 2014-US-007262

PATIENT
  Age: 29 Year
  Sex: Female

DRUGS (2)
  1. XYREM [Suspect]
     Active Substance: SODIUM OXYBATE
     Indication: NARCOLEPSY
     Route: 048
     Dates: start: 201207, end: 201207
  2. XYREM [Suspect]
     Active Substance: SODIUM OXYBATE
     Indication: CATAPLEXY
     Route: 048
     Dates: start: 201207, end: 201207

REACTIONS (6)
  - Anxiety [None]
  - Hepatic enzyme increased [None]
  - Dyspnoea [None]
  - Depression [None]
  - Mental impairment [None]
  - Feeling hot [None]
